FAERS Safety Report 8561193-8 (Version None)
Quarter: 2012Q3

REPORT INFORMATION
  Report Type: 
  Country: None (occurrence: None)
  Receive Date: 20120802
  Receipt Date: 20120724
  Transmission Date: 20120928
  Serious: Yes (Other)
  Sender: FDA-Public Use
  Company Number: US-ASTRAZENECA-2011SE04683

PATIENT
  Age: 66 Year
  Sex: Female
  Weight: 95.3 kg

DRUGS (15)
  1. NEXIUM [Suspect]
     Indication: ULCER
     Route: 048
     Dates: start: 20100601, end: 20101001
  2. NEXIUM [Suspect]
     Dosage: GENERIC
     Route: 048
  3. SAVELLA [Concomitant]
     Route: 048
  4. DEPAKOTE [Concomitant]
     Route: 048
  5. NAPROXEN [Concomitant]
     Indication: PAIN
     Route: 048
  6. BENADRYL [Concomitant]
     Indication: MULTIPLE ALLERGIES
     Route: 048
  7. EFFEXOR [Concomitant]
     Indication: DEPRESSION
     Route: 048
  8. SEROQUEL [Suspect]
     Route: 048
  9. SINGULAIR [Concomitant]
     Route: 055
  10. SKELAXIN [Concomitant]
     Route: 048
  11. SEROQUEL [Suspect]
     Indication: BIPOLAR I DISORDER
     Route: 048
     Dates: end: 20080101
  12. ZETIA [Concomitant]
     Indication: BLOOD CHOLESTEROL ABNORMAL
     Route: 048
  13. MS CONTIN [Concomitant]
     Indication: PAIN
     Route: 048
  14. NEURONTIN [Concomitant]
     Route: 048
  15. METFORMIN HYDROCHLORIDE [Concomitant]
     Indication: DIABETES MELLITUS
     Route: 048

REACTIONS (10)
  - VOMITING [None]
  - DIABETES MELLITUS [None]
  - GLAUCOMA [None]
  - GASTRIC DISORDER [None]
  - DRUG DOSE OMISSION [None]
  - DRUG HYPERSENSITIVITY [None]
  - ADVERSE EVENT [None]
  - CATARACT [None]
  - BLOOD CHOLESTEROL INCREASED [None]
  - ULCER HAEMORRHAGE [None]
